FAERS Safety Report 12360183 (Version 1)
Quarter: 2016Q2

REPORT INFORMATION
  Report Type: Spontaneous
  Country: IT (occurrence: IT)
  Receive Date: 20160512
  Receipt Date: 20160512
  Transmission Date: 20160815
  Serious: Yes (Hospitalization)
  Sender: FDA-Public Use
  Company Number: IT-PFIZER INC-2016256215

PATIENT
  Age: 87 Year
  Sex: Male

DRUGS (6)
  1. ATENOLOL. [Suspect]
     Active Substance: ATENOLOL
     Indication: HYPERTENSION
     Route: 048
     Dates: start: 20150101, end: 20151106
  2. LANOXIN [Suspect]
     Active Substance: DIGOXIN
     Indication: CARDIAC FAILURE
     Dosage: 0.12 MG, 1X/DAY
     Route: 048
     Dates: start: 20150101, end: 20151106
  3. COUMADIN [Concomitant]
     Active Substance: WARFARIN SODIUM
  4. TRIATEC [Concomitant]
     Active Substance: RAMIPRIL
  5. ZITHROMAX [Concomitant]
     Active Substance: AZITHROMYCIN DIHYDRATE
  6. RELVARNELLIPTA [Concomitant]

REACTIONS (3)
  - Asthenia [Unknown]
  - Bradycardia [Unknown]
  - Gait disturbance [Unknown]

NARRATIVE: CASE EVENT DATE: 201511
